FAERS Safety Report 7018422-1 (Version None)
Quarter: 2010Q3

REPORT INFORMATION
  Report Type: 
  Country: None (occurrence: None)
  Receive Date: 20100923
  Receipt Date: 20100913
  Transmission Date: 20110219
  Serious: Yes (Hospitalization)
  Sender: FDA-Public Use
  Company Number: 056-20484-10010751

PATIENT
  Age: 87 Year
  Sex: Female

DRUGS (9)
  1. INNOHEP [Suspect]
     Indication: PHLEBITIS
     Dosage: 14000 IU (1 IN 1 D),SUBCUTANEOUS
     Route: 058
     Dates: start: 20091211, end: 20091218
  2. PREVISCAN (FLUINDIONE) (20 MILLIGRAM, TABLETS) [Suspect]
     Indication: PHLEBITIS
     Dosage: 20 MG (1 IN 1 D),ORAL
     Route: 048
     Dates: start: 20091216, end: 20091221
  3. CORDARONE [Concomitant]
  4. VALSARTAN [Concomitant]
  5. KARDEGIC (ACETYLSALICYLATE LYSINE) (75 MILLIGRAM) [Concomitant]
  6. EUPHYLLINE (AMINOPHYLLINE) [Concomitant]
  7. SPIRIVA [Concomitant]
  8. LANSOPRAZOLE [Concomitant]
  9. LEXOMIL (BROMAZEPAM) [Concomitant]

REACTIONS (8)
  - ANAEMIA [None]
  - GASTROINTESTINAL HAEMORRHAGE [None]
  - HAEMANGIOMA [None]
  - INTERNATIONAL NORMALISED RATIO INCREASED [None]
  - OESOPHAGITIS [None]
  - OXYGEN SATURATION DECREASED [None]
  - RECTAL HAEMORRHAGE [None]
  - SUBCUTANEOUS HAEMATOMA [None]
